FAERS Safety Report 15110278 (Version 1)
Quarter: 2018Q2

REPORT INFORMATION
  Report Type: Spontaneous
  Country: US (occurrence: US)
  Receive Date: 20180612
  Receipt Date: 20180612
  Transmission Date: 20180711
  Serious: Yes (Other)
  Sender: FDA-Public Use
  Company Number: None

PATIENT
  Age: 65 Year
  Sex: Female

DRUGS (1)
  1. CAPECITABINE 500 MG WEST-WARD [Suspect]
     Active Substance: CAPECITABINE
     Indication: COLON CANCER
     Dosage: 1500 TWICE DAILY FOR 14 DAYS ON, 7 DAY OFF ORAL
     Route: 048
     Dates: start: 20180606

REACTIONS (1)
  - Pruritus [None]

NARRATIVE: CASE EVENT DATE: 20180606
